FAERS Safety Report 14842691 (Version 1)
Quarter: 2018Q2

REPORT INFORMATION
  Report Type: Spontaneous
  Country: DE (occurrence: DE)
  Receive Date: 20180503
  Receipt Date: 20180503
  Transmission Date: 20180711
  Serious: Yes (Hospitalization, Other)
  Sender: FDA-Public Use
  Company Number: DE-UCBSA-2018019341

PATIENT
  Age: 34 Year
  Sex: Male

DRUGS (9)
  1. ARIPIPRAZOLE. [Suspect]
     Active Substance: ARIPIPRAZOLE
     Indication: PRODUCT USED FOR UNKNOWN INDICATION
     Dosage: 20 MG, DAILY DOSE
     Route: 048
  2. ARIPIPRAZOLE. [Suspect]
     Active Substance: ARIPIPRAZOLE
     Dosage: 1 DF = UPTO 30MG FROM 11-AUG (YR UNK) TO 09-SEP-2016 1DF = 5MG TO 10MG (14-21-DEC-2016)
     Route: 048
  3. ARIPIPRAZOLE. [Suspect]
     Active Substance: ARIPIPRAZOLE
     Dosage: 5-20 MG
     Route: 048
     Dates: start: 20161214, end: 20161221
  4. LEVETIRACETAM. [Suspect]
     Active Substance: LEVETIRACETAM
     Indication: EPILEPSY
     Dosage: 500 MG, ONCE DAILY (QD)
  5. QUETIAPINE. [Suspect]
     Active Substance: QUETIAPINE
     Indication: PRODUCT USED FOR UNKNOWN INDICATION
     Dosage: UNK UNK, ONCE DAILY (QD)
     Route: 048
     Dates: start: 20161214
  6. ARIPIPRAZOLE. [Suspect]
     Active Substance: ARIPIPRAZOLE
     Dosage: 1 DF = UPTO 30MG FROM 11-AUG (YR UNK) TO 09-SEP-2016 1DF = 5MG TO 10MG (14-21-DEC-2016)
     Route: 048
  7. QUETIAPINE. [Suspect]
     Active Substance: QUETIAPINE
     Dosage: 1 DF = UP TO 400MG 11-AUG (YR UNK) TO 09-SEP-2016 1 DF = 100 TO 300MG ON 14-DEC-2016 1 DF = U
     Route: 048
  8. QUETIAPINE. [Suspect]
     Active Substance: QUETIAPINE
     Dosage: DF = UP TO 400MG 11-AUG (YR UNK) TO 09-SEP-2016 1 DF = 100 TO 300MG ON 14-DEC-2016 1 DF
     Route: 048
  9. KALIUM-DURILES [Concomitant]
     Active Substance: POTASSIUM
     Indication: PRODUCT USED FOR UNKNOWN INDICATION
     Dosage: 1 DF, QD (1 DF = 1 POUCH)
     Route: 048
     Dates: start: 20161214

REACTIONS (4)
  - Therapy cessation [Unknown]
  - Epilepsy [Recovered/Resolved]
  - Stupor [Unknown]
  - Hospitalisation [Unknown]

NARRATIVE: CASE EVENT DATE: 20161214
